FAERS Safety Report 4774598-8 (Version None)
Quarter: 2005Q3

REPORT INFORMATION
  Report Type: 
  Country: None (occurrence: None)
  Receive Date: 20050921
  Receipt Date: 20050616
  Transmission Date: 20060218
  Serious: Yes (Hospitalization)
  Sender: FDA-Public Use
  Company Number: PHRM2005FR01882

PATIENT
  Age: 77 Year
  Sex: Female

DRUGS (6)
  1. GLEEVEC [Suspect]
     Indication: CHRONIC MYELOID LEUKAEMIA
     Dosage: 400 MG DAILY
     Route: 048
     Dates: start: 20050513, end: 20050603
  2. ALLOPURINOL [Concomitant]
     Indication: PURINE METABOLISM DISORDER
     Dosage: 300 MG/DAY
     Route: 048
     Dates: start: 20050513, end: 20050602
  3. OMEPRAZOLE [Concomitant]
     Indication: OESOPHAGITIS
     Dosage: 20 MG/DAY
     Route: 048
  4. LEXOMIL [Concomitant]
     Indication: ANXIETY
     Dosage: 0.5 TAB/DAY
     Route: 048
  5. FOSAMAX [Concomitant]
     Indication: OSTEOPOROSIS
     Route: 048
  6. AMLOR [Concomitant]
     Indication: ESSENTIAL HYPERTENSION
     Route: 048

REACTIONS (17)
  - CHEILITIS [None]
  - DERMATITIS BULLOUS [None]
  - DRUG HYPERSENSITIVITY [None]
  - DRUG RASH WITH EOSINOPHILIA AND SYSTEMIC SYMPTOMS [None]
  - EOSINOPHILIA [None]
  - EYELID OEDEMA [None]
  - FACE OEDEMA [None]
  - LEUKOCYTOSIS [None]
  - LYMPHADENOPATHY [None]
  - LYMPHOPENIA [None]
  - MUCOUS MEMBRANE DISORDER [None]
  - NEUTROPHILIA [None]
  - OEDEMA PERIPHERAL [None]
  - PURPURA [None]
  - PYREXIA [None]
  - RASH MACULO-PAPULAR [None]
  - RASH MORBILLIFORM [None]
